FAERS Safety Report 12135777 (Version 6)
Quarter: 2016Q2

REPORT INFORMATION
  Report Type: Spontaneous
  Country: ES (occurrence: ES)
  Receive Date: 20160302
  Receipt Date: 20160517
  Transmission Date: 20160815
  Serious: Yes (Other)
  Sender: FDA-Public Use
  Company Number: ES-AMGEN-ESPSP2016024693

PATIENT
  Age: 49 Year
  Sex: Male

DRUGS (6)
  1. ENBREL [Suspect]
     Active Substance: ETANERCEPT
     Dosage: 50 MG, WEEKLY
     Route: 058
  2. DILIBAN [Concomitant]
     Active Substance: ACETAMINOPHEN\TRAMADOL HYDROCHLORIDE
     Indication: ANALGESIC THERAPY
     Dosage: 75 MG, 3X/DAY (EVERY 8 HOURS)
  3. SENSEDOL [Concomitant]
     Indication: ARTHRALGIA
     Dosage: UNK UNK, 1X/DAY (ONE APPLICATION IF A FLARE-UP)
  4. INACID                             /00003801/ [Concomitant]
     Active Substance: INDOMETHACIN
     Indication: ANKYLOSING SPONDYLITIS
     Dosage: 1 DF, 3X/DAY
  5. SENSEDOL [Concomitant]
     Indication: ARTHRALGIA
  6. ENBREL [Suspect]
     Active Substance: ETANERCEPT
     Indication: ANKYLOSING SPONDYLITIS
     Dosage: 50 MG, ONCE WEEKLY (ON FRIDAYS)
     Route: 058
     Dates: start: 20160122

REACTIONS (10)
  - Ankylosing spondylitis [Recovered/Resolved]
  - Sensitivity to weather change [Recovering/Resolving]
  - Discomfort [Recovering/Resolving]
  - Injection site pain [Not Recovered/Not Resolved]
  - Condition aggravated [Recovered/Resolved]
  - Abdominal discomfort [Recovered/Resolved]
  - Injection site swelling [Recovered/Resolved]
  - Pain [Recovering/Resolving]
  - Fatigue [Recovered/Resolved]
  - Muscle rigidity [Not Recovered/Not Resolved]

NARRATIVE: CASE EVENT DATE: 2016
